FAERS Safety Report 5959021-X (Version None)
Quarter: 2008Q4

REPORT INFORMATION
  Report Type: 
  Country: None (occurrence: None)
  Receive Date: 20081114
  Receipt Date: 20080826
  Transmission Date: 20090506
  Serious: Yes (Other)
  Sender: FDA-Public Use
  Company Number: PHEH2008US07618

PATIENT
  Sex: Female

DRUGS (2)
  1. TEKTURNA HCT [Suspect]
     Indication: HYPERTENSION
     Dosage: 150/12.5 QD, ORAL
     Route: 048
     Dates: start: 20080814, end: 20080819
  2. ACCUPRIL [Concomitant]

REACTIONS (2)
  - DYSPNOEA [None]
  - THROAT TIGHTNESS [None]
